FAERS Safety Report 21806156 (Version 1)
Quarter: 2023Q1

REPORT INFORMATION
  Report Type: Report from Study
  Country: US (occurrence: US)
  Receive Date: 20230102
  Receipt Date: 20230102
  Transmission Date: 20230418
  Serious: No
  Sender: FDA-Public Use
  Company Number: US-ABBVIE-4209661

PATIENT
  Sex: Female

DRUGS (1)
  1. RINVOQ [Suspect]
     Active Substance: UPADACITINIB
     Indication: Rheumatoid arthritis
     Route: 048
     Dates: end: 20220915

REACTIONS (6)
  - Peripheral swelling [Unknown]
  - Hyperhidrosis [Unknown]
  - Pyrexia [Unknown]
  - Dehydration [Unknown]
  - Pain [Unknown]
  - Headache [Unknown]
